FAERS Safety Report 11704085 (Version 3)
Quarter: 2015Q4

REPORT INFORMATION
  Report Type: Spontaneous
  Country: ES (occurrence: ES)
  Receive Date: 20151106
  Receipt Date: 20151210
  Transmission Date: 20160304
  Serious: Yes (Other)
  Sender: FDA-Public Use
  Company Number: ES-009507513-1510ESP015260

PATIENT
  Age: 28 Year
  Sex: Female

DRUGS (1)
  1. IMPLANON [Suspect]
     Active Substance: ETONOGESTREL
     Indication: CONTRACEPTION
     Dosage: UNK
     Route: 058
     Dates: start: 201404, end: 201510

REACTIONS (1)
  - Cranial nerve paralysis [Recovered/Resolved]

NARRATIVE: CASE EVENT DATE: 201510
